FAERS Safety Report 17753756 (Version 1)
Quarter: 2020Q2

REPORT INFORMATION
  Report Type: Spontaneous
  Country: US (occurrence: US)
  Receive Date: 20200506
  Receipt Date: 20200506
  Transmission Date: 20200714
  Serious: Yes (Hospitalization)
  Sender: FDA-Public Use
  Company Number: US-ROCHE-2428980

PATIENT
  Sex: Male

DRUGS (10)
  1. JARDIANCE [Concomitant]
     Active Substance: EMPAGLIFLOZIN
  2. LINZESS [Concomitant]
     Active Substance: LINACLOTIDE
  3. VICTOZA [Concomitant]
     Active Substance: LIRAGLUTIDE
  4. ESBRIET [Suspect]
     Active Substance: PIRFENIDONE
     Indication: IDIOPATHIC PULMONARY FIBROSIS
     Dosage: 3 TABLETS
     Route: 048
     Dates: start: 20190416
  5. LISINOPRIL. [Concomitant]
     Active Substance: LISINOPRIL
  6. TOPIRAMATE. [Concomitant]
     Active Substance: TOPIRAMATE
  7. AMITRIPTYLINE [Concomitant]
     Active Substance: AMITRIPTYLINE
  8. OZEMPIC [Concomitant]
     Active Substance: SEMAGLUTIDE
  9. SYMBICORT [Concomitant]
     Active Substance: BUDESONIDE\FORMOTEROL FUMARATE DIHYDRATE
  10. BELSOMRA [Concomitant]
     Active Substance: SUVOREXANT

REACTIONS (4)
  - Upper respiratory tract infection [Unknown]
  - Vomiting [Unknown]
  - Diarrhoea [Unknown]
  - Nausea [Unknown]
